FAERS Safety Report 14288018 (Version 1)
Quarter: 2017Q4

REPORT INFORMATION
  Report Type: Spontaneous
  Country: US (occurrence: US)
  Receive Date: 20171214
  Receipt Date: 20171214
  Transmission Date: 20180321
  Serious: No
  Sender: FDA-Public Use
  Company Number: US-PERRIGO-17US026886

PATIENT
  Age: 58 Year
  Sex: Female
  Weight: 56.69 kg

DRUGS (1)
  1. BACITRACIN. [Suspect]
     Active Substance: BACITRACIN
     Indication: HORDEOLUM
     Dosage: SMALL AMOUNT, BID
     Route: 047
     Dates: start: 20170905, end: 20170907

REACTIONS (4)
  - Ocular hyperaemia [Recovering/Resolving]
  - Eye pain [Recovering/Resolving]
  - Hypersensitivity [Recovering/Resolving]
  - Condition aggravated [Recovering/Resolving]

NARRATIVE: CASE EVENT DATE: 20170905
